FAERS Safety Report 7950871-7 (Version None)
Quarter: 2011Q4

REPORT INFORMATION
  Report Type: 
  Country: None (occurrence: None)
  Receive Date: 20111201
  Receipt Date: 20111123
  Transmission Date: 20120403
  Serious: Yes (Hospitalization)
  Sender: FDA-Public Use
  Company Number: US-BIOGENIDEC-2011BI039926

PATIENT
  Age: 61 Year
  Sex: Male

DRUGS (6)
  1. AVONEX [Suspect]
     Indication: MULTIPLE SCLEROSIS
     Route: 030
     Dates: start: 20111001
  2. AVONEX [Suspect]
     Route: 030
  3. AVONEX [Suspect]
     Route: 030
     Dates: end: 20110601
  4. AVONEX [Suspect]
     Route: 030
     Dates: start: 20040101
  5. AVONEX [Suspect]
     Route: 030
  6. AVONEX [Suspect]
     Route: 030

REACTIONS (6)
  - BLOOD POTASSIUM DECREASED [None]
  - ADVERSE DRUG REACTION [None]
  - DIVERTICULITIS INTESTINAL HAEMORRHAGIC [None]
  - COLITIS [None]
  - INFLUENZA LIKE ILLNESS [None]
  - COW'S MILK INTOLERANCE [None]
